FAERS Safety Report 13697431 (Version 6)
Quarter: 2020Q3

REPORT INFORMATION
  Report Type: Report from Study
  Country: CN (occurrence: CN)
  Receive Date: 20170628
  Receipt Date: 20190906
  Transmission Date: 20201105
  Serious: Yes (Death, Life-Threatening, Hospitalization)
  Sender: FDA-Public Use
  Company Number: CN-ASTRAZENECA-2017SE65712

PATIENT
  Age: 24344 Day
  Sex: Male
  Weight: 45 kg

DRUGS (8)
  1. CELEBREX [Concomitant]
     Active Substance: CELECOXIB
     Indication: PAIN
     Route: 048
     Dates: end: 20170610
  2. CEFDINIR. [Concomitant]
     Active Substance: CEFDINIR
     Indication: INFECTION PROPHYLAXIS
     Route: 048
     Dates: end: 20170609
  3. NADROPARIN CALCIUM [Concomitant]
     Active Substance: NADROPARIN CALCIUM
     Indication: THROMBOSIS PROPHYLAXIS
     Dosage: 0.3ML ONCE/SINGLE ADMINISTRATION
     Route: 058
     Dates: start: 20170611, end: 20170611
  4. MEDI4736 [Suspect]
     Active Substance: DURVALUMAB
     Indication: BLADDER TRANSITIONAL CELL CARCINOMA
     Route: 042
     Dates: start: 20170609, end: 20170609
  5. TREMELIMUMAB. [Suspect]
     Active Substance: TREMELIMUMAB
     Indication: BLADDER TRANSITIONAL CELL CARCINOMA
     Route: 042
     Dates: start: 20170609, end: 20170609
  6. POLYENEPHOSPHATIDYLCHOLINE [Concomitant]
     Indication: PROPHYLAXIS
     Route: 048
     Dates: end: 20170611
  7. MAGNESIUM ISOGLYCYRRHIZINATE [Concomitant]
     Active Substance: MAGNESIUM ISOGLYCYRRHIZINATE
     Indication: PROPHYLAXIS
     Route: 042
     Dates: start: 20170611, end: 20170612
  8. INDOMETACIN [Concomitant]
     Active Substance: INDOMETHACIN
     Indication: PYREXIA
     Dosage: 0.06G ONCE/SINGLE ADMINISTRATION
     Route: 054
     Dates: start: 20170610, end: 20170610

REACTIONS (3)
  - Immune-mediated hepatitis [Not Recovered/Not Resolved]
  - Cardiomyopathy [Fatal]
  - Interstitial lung disease [Fatal]

NARRATIVE: CASE EVENT DATE: 20170611
